FAERS Safety Report 9476868 (Version 1)
Quarter: 2013Q3

REPORT INFORMATION
  Report Type: Spontaneous
  Country: GB (occurrence: GB)
  Receive Date: 20130826
  Receipt Date: 20130826
  Transmission Date: 20140515
  Serious: Yes (Other)
  Sender: FDA-Public Use
  Company Number: GB-ACTAVIS-2013-15082

PATIENT
  Sex: 0

DRUGS (8)
  1. QUETIAPINE (UNKNOWN) [Suspect]
     Indication: MOOD DISORDER DUE TO A GENERAL MEDICAL CONDITION
     Dosage: 50MG FOR 1 WEEK, 100MG NEXT WEEK, 200MG NEXT WEEK
     Route: 048
     Dates: start: 20130208
  2. QUETIAPINE (UNKNOWN) [Suspect]
     Dosage: 100 MG, UNKNOWN
     Route: 048
  3. QUETIAPINE (UNKNOWN) [Suspect]
     Dosage: 200 MG, UNKNOWN
     Route: 048
  4. DULOXETINE [Concomitant]
     Indication: PRODUCT USED FOR UNKNOWN INDICATION
     Dosage: UNK, UNKNOWN
     Route: 065
  5. PREGABALIN [Concomitant]
     Indication: PRODUCT USED FOR UNKNOWN INDICATION
     Dosage: UNK, UNKNOWN
     Route: 065
  6. LANSOPRAZOLE [Concomitant]
     Indication: PRODUCT USED FOR UNKNOWN INDICATION
     Dosage: UNK, UNKNOWN
     Route: 065
  7. IBUPROFEN [Concomitant]
     Indication: PRODUCT USED FOR UNKNOWN INDICATION
     Dosage: UNK, UNKNOWN
     Route: 065
  8. PROPANOL [Concomitant]
     Indication: PRODUCT USED FOR UNKNOWN INDICATION
     Dosage: UNK, UNKNOWN
     Route: 065

REACTIONS (8)
  - Somnolence [Unknown]
  - Drug prescribing error [Unknown]
  - Speech disorder [Unknown]
  - Coordination abnormal [Unknown]
  - Gait disturbance [Unknown]
  - Movement disorder [Unknown]
  - Crying [Unknown]
  - Dysarthria [Unknown]
